FAERS Safety Report 6317201-8 (Version None)
Quarter: 2009Q3

REPORT INFORMATION
  Report Type: 
  Country: None (occurrence: None)
  Receive Date: 20090820
  Receipt Date: 20090813
  Transmission Date: 20100115
  Serious: Yes (Hospitalization)
  Sender: FDA-Public Use
  Company Number: US-AMGEN-QUU358305

PATIENT
  Sex: Female
  Weight: 63.1 kg

DRUGS (2)
  1. ENBREL [Suspect]
     Indication: JUVENILE ARTHRITIS
     Route: 058
     Dates: start: 20031001
  2. ORAL CONTRACEPTIVE NOS [Concomitant]

REACTIONS (5)
  - ABSCESS [None]
  - INJECTION SITE PAIN [None]
  - INJECTION SITE REACTION [None]
  - JUVENILE ARTHRITIS [None]
  - POST PROCEDURAL INFECTION [None]
